FAERS Safety Report 4468242-7 (Version None)
Quarter: 2004Q4

REPORT INFORMATION
  Report Type: 
  Country: None (occurrence: None)
  Receive Date: 20041007
  Receipt Date: 20041005
  Transmission Date: 20050328
  Serious: Yes (Hospitalization)
  Sender: FDA-Public Use
  Company Number: AU-MERCK-0410AUS00042

PATIENT
  Sex: Female

DRUGS (4)
  1. DILTIAZEM HYDROCHLORIDE [Concomitant]
     Route: 065
  2. ESTROGENS (UNSPECIFIED) [Concomitant]
     Indication: HORMONE REPLACEMENT THERAPY
     Route: 065
  3. MOCLOBEMIDE [Concomitant]
     Route: 065
  4. VIOXX [Suspect]
     Route: 048
     Dates: start: 20000101

REACTIONS (1)
  - CHEST PAIN [None]
